FAERS Safety Report 24534144 (Version 2)
Quarter: 2024Q4

REPORT INFORMATION
  Report Type: Spontaneous
  Country: US (occurrence: US)
  Receive Date: 20241022
  Receipt Date: 20241028
  Transmission Date: 20250115
  Serious: No
  Sender: AMGEN
  Company Number: US-AMGEN-USASP2024207402

PATIENT
  Age: 64 Year
  Sex: Female

DRUGS (3)
  1. PROLIA [Suspect]
     Active Substance: DENOSUMAB
     Indication: Product used for unknown indication
     Dosage: UNK
     Route: 065
  2. EVENITY [Suspect]
     Active Substance: ROMOSOZUMAB-AQQG
     Indication: Osteoporosis
     Dosage: UNK UNK, QMO (APPROXIMATELY EVERY 30 DAYS, I^VE BEEN REALLY CLOSE)
     Route: 065
     Dates: start: 202310, end: 20241016
  3. EVENITY [Suspect]
     Active Substance: ROMOSOZUMAB-AQQG
     Indication: Osteopenia

REACTIONS (4)
  - Bone loss [Recovered/Resolved]
  - Back pain [Recovered/Resolved]
  - Adverse drug reaction [Unknown]
  - Bone graft [Unknown]

NARRATIVE: CASE EVENT DATE: 20170101
